FAERS Safety Report 12335864 (Version 2)
Quarter: 2016Q2

REPORT INFORMATION
  Report Type: Report from Study
  Country: GB (occurrence: GB)
  Receive Date: 20160505
  Receipt Date: 20160518
  Transmission Date: 20160815
  Serious: Yes (Other)
  Sender: FDA-Public Use
  Company Number: GB-UCBSA-2016000953

PATIENT
  Age: 61 Year
  Sex: Female

DRUGS (1)
  1. CERTOLIZUMAB PEGOL [Suspect]
     Active Substance: CERTOLIZUMAB PEGOL
     Indication: RHEUMATOID ARTHRITIS
     Dosage: 200 MG, EV 2 WEEKS(QOW)
     Route: 058
     Dates: start: 20150206

REACTIONS (4)
  - Injection site pain [Unknown]
  - Melanocytic naevus [Unknown]
  - Skin cancer [Unknown]
  - Product quality issue [Unknown]

NARRATIVE: CASE EVENT DATE: 20160107
